FAERS Safety Report 21192483 (Version 3)
Quarter: 2022Q4

REPORT INFORMATION
  Report Type: Report from Study
  Country: CH (occurrence: CH)
  Receive Date: 20220809
  Receipt Date: 20221020
  Transmission Date: 20230112
  Serious: Yes (Hospitalization, Other)
  Sender: FDA-Public Use
  Company Number: CH-ABBVIE-22K-151-4497434-00

PATIENT
  Age: 74 Year
  Sex: Male
  Weight: 51 kg

DRUGS (36)
  1. CARBIDOPA\LEVODOPA [Suspect]
     Active Substance: CARBIDOPA\LEVODOPA
     Indication: Parkinson^s disease
     Dosage: MD: 2.5 ML, CRD: 4.2 ML/H, ED: 2.5 ML?16H THERAPY
     Route: 050
     Dates: start: 20220427
  2. CARBIDOPA\LEVODOPA [Suspect]
     Active Substance: CARBIDOPA\LEVODOPA
     Route: 050
     Dates: start: 201702
  3. magnesium hydroxide (Magnesia San Pellegrino) [Concomitant]
     Indication: Palpitations
     Dosage: FREQUENCY TEXT: 1-0-1-0 (1 = 4.5 G)
     Route: 048
     Dates: start: 20220715, end: 20220722
  4. Pramipexoldihydrochlorid-Monohydrat (Sifrol) [Concomitant]
     Indication: Parkinson^s disease
     Dosage: FREQUENCY TEXT: 0-0-0-1 TABLETS
     Route: 048
     Dates: start: 20220715, end: 20220810
  5. RIVASTIGMINE [Concomitant]
     Active Substance: RIVASTIGMINE
     Indication: Parkinson^s disease
     Dosage: 9.5MG/24H
     Route: 003
     Dates: start: 20220724, end: 20220810
  6. RIVASTIGMINE [Concomitant]
     Active Substance: RIVASTIGMINE
     Indication: Parkinson^s disease
     Dosage: 9.5MG/24H, FREQUENCY TEXT: 1-0-0-0 PATCH
     Route: 003
     Dates: start: 20220724, end: 20220810
  7. Quetiapinum ut Quetiapini fumaras (Quetiapin Helvepharm) [Concomitant]
     Indication: Restlessness
     Dosage: FREQUENCY TEXT: 0-0-0-1 TABLETS
     Route: 048
     Dates: start: 20220716, end: 20220723
  8. Magnesii aspartatis hydrochloridum trihydricum (Magnesiocard) [Concomitant]
     Indication: Palpitations
     Dosage: FREQUENCY TEXT: 1-0-1-0 BTL
     Route: 048
     Dates: start: 20220723, end: 20220810
  9. Pregabalinum (Pregabalin) [Concomitant]
     Indication: Neuralgia
     Dosage: FREQUENCY TEXT: 0-0-1-0 CAPSULES
     Route: 048
     Dates: start: 20220721, end: 20220810
  10. metamizole sodium (Novalgin) [Concomitant]
     Indication: Pain
     Dosage: 20-20-20-20 DROPS?FREQUENCY TEXT: 1-0-0-1 TABLETS
     Route: 048
     Dates: start: 20220816, end: 20220819
  11. Paracetamol (Dafalgan) [Concomitant]
     Indication: Pain
     Dosage: 1-1-1-1 TABLET
     Route: 048
     Dates: start: 20220715, end: 20220810
  12. Magaldrat (Riopan) [Concomitant]
     Indication: Abdominal discomfort
     Dosage: 1-0-0-1 TABLET?FREQUENCY TEXT: 1 BIT
     Route: 048
     Dates: start: 20220731, end: 20220731
  13. Pregabalinum (Lyrica) [Concomitant]
     Indication: Neuralgia
     Dosage: FREQUENCY TEXT: 1-0-1-0 CAPS
     Route: 048
     Dates: start: 20220715, end: 20220720
  14. Trimethoprimum and Sulfamethoxazolum (Bactrim Forte) [Concomitant]
     Indication: Urinary tract infection
     Dosage: 800/160MG
     Route: 048
     Dates: start: 20220801, end: 20220804
  15. Trimethoprimum and Sulfamethoxazolum (Bactrim Forte) [Concomitant]
     Indication: Urinary tract infection
     Dosage: 800/160MG?FREQUENCY TEXT: 1-0-1-0 TABLET
     Route: 048
     Dates: start: 20220801, end: 20220804
  16. Enoxaparin natrium (Clexane) [Concomitant]
     Indication: Thrombosis prophylaxis
     Dosage: FREQUENCY TEXT: 0-0-0-1 PC
     Route: 048
     Dates: start: 20220717, end: 20220810
  17. oxycodone hydrochloride (Oxynorm) [Concomitant]
     Indication: Pain
     Dosage: FREQUENCY TEXT: 1-4X0.2ML
     Route: 048
     Dates: start: 20220715, end: 20220804
  18. Trospii chloridum (Spasmex) [Concomitant]
     Indication: Hypertonic bladder
     Dosage: FREQUENCY TEXT: 1-0-1-0 TABLETS
     Route: 048
     Dates: start: 20220715, end: 20220810
  19. Cetylpyridinii chloridum, Lidocaini hydrochloridum, ... (Angina MCC) [Concomitant]
     Indication: Oropharyngeal pain
     Dosage: 1.25/1/4MG
     Route: 048
     Dates: start: 20220804, end: 20220804
  20. Cetylpyridinii chloridum, Lidocaini hydrochloridum, ... (Angina MCC) [Concomitant]
     Indication: Oropharyngeal pain
     Dosage: 1.25/1/4MG?1 TABLET
     Route: 048
     Dates: start: 20220804, end: 20220804
  21. Redormin [Concomitant]
     Indication: Initial insomnia
     Route: 048
     Dates: start: 20220720, end: 20220727
  22. Macrogol 3350 (Magical Liquid) [Concomitant]
     Indication: Constipation
     Dosage: 25 ML
     Route: 048
     Dates: start: 20220716, end: 20220810
  23. Thiamini hydrochloridum (Vitamin B1) (Benerva) [Concomitant]
     Indication: Vitamin supplementation
     Route: 048
     Dates: start: 20220716, end: 20220810
  24. Esomeprazolum (Esomep MUPS) [Concomitant]
     Indication: Gastrooesophageal reflux disease
     Dosage: FREQUENCY TEXT: 1-0-0-0 TABLETS
     Route: 048
     Dates: start: 20220716, end: 20220810
  25. Rivastigmin (Exelon Patch) [Concomitant]
     Indication: Dementia
     Route: 003
     Dates: start: 20220716, end: 20220719
  26. Rivastigmin (Exelon Patch) [Concomitant]
     Indication: Dementia
     Dosage: FREQUENCY TEXT: 1-0-0-0 PATCH
     Route: 003
     Dates: start: 20220716, end: 20220719
  27. VEKLURY [Concomitant]
     Active Substance: REMDESIVIR
     Indication: COVID-19
     Dosage: FREQUENCY TEXT: 0-100-0-0 MG
     Route: 042
     Dates: start: 20220804, end: 20220808
  28. VITAMIN D3 [Concomitant]
     Active Substance: CHOLECALCIFEROL
     Indication: Vitamin D deficiency
     Dosage: 4000 IU/ML
     Route: 048
     Dates: start: 20220716, end: 20220718
  29. VITAMIN D3 [Concomitant]
     Active Substance: CHOLECALCIFEROL
     Indication: Vitamin D deficiency
     Dosage: 4000 IU/ML
     Route: 048
     Dates: start: 20220716, end: 20220718
  30. Natrii picosulfas monohydricum (Laxoberon) [Concomitant]
     Indication: Constipation
     Dosage: FREQUENCY TEXT: 15 DROPS / DATE
     Route: 048
     Dates: start: 20220717, end: 20220724
  31. hydromorphone hydrochloride (Palladon Inject) [Concomitant]
     Indication: Pain
     Dosage: FREQUENCY TEXT: 6X0.2MG
     Route: 042
     Dates: start: 20220716, end: 20220716
  32. FOLIC ACID [Concomitant]
     Active Substance: FOLIC ACID
     Indication: Vitamin supplementation
     Dosage: FREQUENCY TEXT: 1-0-0-0 TABLET
     Route: 048
     Dates: start: 20220716, end: 20220803
  33. Tapentadol (Palexia) [Concomitant]
     Indication: Pain
     Dosage: FREQUENCY TEXT: 1-0-0-1 TABLETS
     Route: 048
     Dates: start: 20220716, end: 20220717
  34. Quetiapine (Sequase) [Concomitant]
     Indication: Restlessness
     Dosage: FREQUENCY TEXT: 0-0-0-1 TABLETS
     Route: 048
     Dates: start: 20220724, end: 20220725
  35. Calciumcarbonat, Cholecalciferol (Vitamin D3) (Kalcipos-D3) [Concomitant]
     Indication: Vitamin D deficiency
     Dosage: 500MG/800E
     Route: 048
     Dates: start: 20220716, end: 20220810
  36. Calciumcarbonat, Cholecalciferol (Vitamin D3) (Kalcipos-D3) [Concomitant]
     Indication: Vitamin D deficiency
     Dosage: 500MG/800E?FREQUENCY TEXT: 0-0-1-0 TABLET
     Route: 048
     Dates: start: 20220716, end: 20220810

REACTIONS (29)
  - COVID-19 pneumonia [Recovered/Resolved]
  - Mobility decreased [Recovering/Resolving]
  - General physical health deterioration [Recovered/Resolved]
  - Parkinson^s disease [Recovered/Resolved]
  - Catarrh [Not Recovered/Not Resolved]
  - Closed fracture manipulation [Recovered/Resolved]
  - Delirium [Not Recovered/Not Resolved]
  - Normochromic normocytic anaemia [Recovering/Resolving]
  - Weight decreased [Unknown]
  - Femur fracture [Recovered/Resolved]
  - Cholelithiasis [Unknown]
  - Hyponatraemia [Recovering/Resolving]
  - Dysphagia [Not Recovered/Not Resolved]
  - Somnolence [Unknown]
  - Hypoalbuminaemia [Unknown]
  - Pain in extremity [Not Recovered/Not Resolved]
  - Arthralgia [Unknown]
  - Head injury [Unknown]
  - Balance disorder [Recovering/Resolving]
  - Skin laceration [Recovered/Resolved]
  - Gait disturbance [Recovering/Resolving]
  - Attention deficit hyperactivity disorder [Recovered/Resolved]
  - Urinary retention [Not Recovered/Not Resolved]
  - Dehydration [Unknown]
  - Hand fracture [Recovered/Resolved]
  - Cachexia [Recovered/Resolved]
  - Oxygen saturation decreased [Recovered/Resolved]
  - Contusion [Unknown]
  - Cholelithiasis [Unknown]

NARRATIVE: CASE EVENT DATE: 20210701
